FAERS Safety Report 19447911 (Version 1)
Quarter: 2021Q2

REPORT INFORMATION
  Report Type: Spontaneous
  Country: US (occurrence: US)
  Receive Date: 20210621
  Receipt Date: 20210621
  Transmission Date: 20210717
  Serious: No
  Sender: FDA-Public Use
  Company Number: None

PATIENT
  Age: 56 Year
  Sex: Male

DRUGS (1)
  1. AMLODIPINE (AMLODIPINE BESYLATE 10MG TAB) [Suspect]
     Active Substance: AMLODIPINE BESYLATE
     Indication: HYPERTENSION
     Route: 048
     Dates: start: 20180221, end: 20210504

REACTIONS (3)
  - Gingival hypertrophy [None]
  - Tooth infection [None]
  - Toothache [None]

NARRATIVE: CASE EVENT DATE: 20210504
